FAERS Safety Report 21010813 (Version 1)
Quarter: 2022Q2

REPORT INFORMATION
  Report Type: Report from Study
  Country: US (occurrence: None)
  Receive Date: 20220627
  Receipt Date: 20220627
  Transmission Date: 20220720
  Serious: Yes (Hospitalization)
  Sender: FDA-Public Use
  Company Number: US-Eisai Medical Research-EC-2022-117513

PATIENT
  Age: 64 Year
  Sex: Female
  Weight: 72.57 kg

DRUGS (5)
  1. LENVIMA [Suspect]
     Active Substance: LENVATINIB
     Indication: Endometrial cancer
     Route: 048
     Dates: start: 20220323, end: 202206
  2. KEYTRUDA [Concomitant]
     Active Substance: PEMBROLIZUMAB
     Dosage: DOSE AND FREQUENCY UNKNOWN
  3. LISINOPRIL [Concomitant]
     Active Substance: LISINOPRIL
     Dosage: DOSE AND FREQUENCY UNKNOWN
  4. MIRALAX [Concomitant]
     Active Substance: POLYETHYLENE GLYCOL 3350
     Dosage: DOSE AND FREQUENCY UNKNOWN
  5. PHENYTOIN [Concomitant]
     Active Substance: PHENYTOIN
     Dosage: DOSE AND FREQUENCY UNKNOWN

REACTIONS (1)
  - Large intestine infection [Unknown]

NARRATIVE: CASE EVENT DATE: 20220611
